FAERS Safety Report 5242692-3 (Version None)
Quarter: 2007Q1

REPORT INFORMATION
  Report Type: 
  Country: None (occurrence: None)
  Receive Date: 20061201
  Receipt Date: 20060725
  Transmission Date: 20070707
  Serious: No
  Sender: FDA-Public Use
  Company Number: 2006PV011965

PATIENT
  Age: 62 Year
  Sex: Female
  Weight: 72.5755 kg

DRUGS (13)
  1. BYETTA [Suspect]
     Indication: GLUCOSE TOLERANCE IMPAIRED
     Dosage: SEE IMAGE
     Route: 058
     Dates: start: 20060329, end: 20060401
  2. BYETTA [Suspect]
     Indication: GLUCOSE TOLERANCE IMPAIRED
     Dosage: SEE IMAGE
     Route: 058
     Dates: start: 20060401
  3. BYETTA [Suspect]
  4. AVANDIA [Concomitant]
  5. SYNTHROID [Concomitant]
  6. GLUCOPHAGE [Concomitant]
  7. KLOR-CON [Concomitant]
  8. MOBIC [Concomitant]
  9. FUROSEMIDE [Concomitant]
  10. VITAMIN B-12 [Concomitant]
  11. VITAMIN D [Concomitant]
  12. CALCIUM [Concomitant]
  13. MAXZIDE [Concomitant]

REACTIONS (11)
  - CONDITION AGGRAVATED [None]
  - DECREASED APPETITE [None]
  - FACE OEDEMA [None]
  - FLUID RETENTION [None]
  - HUNGER [None]
  - INCREASED APPETITE [None]
  - NAUSEA [None]
  - OEDEMA PERIPHERAL [None]
  - THERAPEUTIC RESPONSE UNEXPECTED [None]
  - WEIGHT DECREASED [None]
  - WEIGHT INCREASED [None]
